FAERS Safety Report 17369744 (Version 1)
Quarter: 2020Q1

REPORT INFORMATION
  Report Type: Spontaneous
  Country: ES (occurrence: ES)
  Receive Date: 20200205
  Receipt Date: 20200205
  Transmission Date: 20200409
  Serious: Yes (Hospitalization)
  Sender: FDA-Public Use
  Company Number: ES-TEVA-2020-ES-1181224

PATIENT
  Age: 70 Year
  Sex: Female

DRUGS (3)
  1. ALOPURINOL [Suspect]
     Active Substance: ALLOPURINOL
     Indication: THROMBOCYTOSIS
     Dosage: 1 TABLET AT BREAKFAST
     Route: 048
     Dates: start: 20190905, end: 20190916
  2. HYDREA [Suspect]
     Active Substance: HYDROXYUREA
     Indication: THROMBOCYTOSIS
     Dosage: 1 GRAM
     Route: 048
     Dates: start: 20190905, end: 20190908
  3. HYDREA [Suspect]
     Active Substance: HYDROXYUREA
     Dosage: 1.5 GRAM
     Route: 048
     Dates: start: 20190909, end: 20190916

REACTIONS (2)
  - Rash erythematous [Recovered/Resolved]
  - Pancytopenia [Recovering/Resolving]

NARRATIVE: CASE EVENT DATE: 20190912
